FAERS Safety Report 5076338-4 (Version None)
Quarter: 2006Q3

REPORT INFORMATION
  Report Type: 
  Country: None (occurrence: None)
  Receive Date: 20060807
  Receipt Date: 20060728
  Transmission Date: 20061208
  Serious: Yes (Other)
  Sender: FDA-Public Use
  Company Number: MEDI-0004836

PATIENT
  Sex: Female

DRUGS (3)
  1. SYNAGIS [Suspect]
     Indication: ANTIVIRAL PROPHYLAXIS
     Dosage: 85 MG, INTRAMUSCULAR
     Route: 030
     Dates: start: 20031017, end: 20031224
  2. SYNAGIS [Suspect]
     Indication: ANTIVIRAL PROPHYLAXIS
     Dosage: 85 MG, INTRAMUSCULAR
     Route: 030
     Dates: start: 20031017
  3. SYNAGIS [Suspect]
     Indication: ANTIVIRAL PROPHYLAXIS
     Dosage: 85 MG, INTRAMUSCULAR
     Route: 030
     Dates: start: 20031119

REACTIONS (1)
  - CEREBRAL PALSY [None]
